FAERS Safety Report 16956756 (Version 2)
Quarter: 2019Q4

REPORT INFORMATION
  Report Type: Spontaneous
  Country: PT (occurrence: PT)
  Receive Date: 20191024
  Receipt Date: 20191105
  Transmission Date: 20200122
  Serious: Yes (Hospitalization, Other)
  Sender: FDA-Public Use
  Company Number: PT-TEVA-2019-PT-1125196

PATIENT
  Age: 82 Year
  Sex: Male

DRUGS (3)
  1. OLMESARTAN W/HYDROCHLOROTHIAZIDE [Suspect]
     Active Substance: HYDROCHLOROTHIAZIDE\OLMESARTAN MEDOXOMIL
     Indication: HYPERTENSION
     Dosage: 1 DOSAGE FORM IS COMPOSED BY 20MG OF OLMESARTNA WITH 12,5 MG OF HYDROCHLOROTIAZIDE
     Route: 048
  2. PRAVASTATINE [Suspect]
     Active Substance: PRAVASTATIN
     Indication: DYSLIPIDAEMIA
     Dosage: 40 MILLIGRAM DAILY;
     Route: 048
  3. DILTIAZEM. [Suspect]
     Active Substance: DILTIAZEM
     Indication: HYPERTENSION
     Dosage: 200 MILLIGRAM DAILY;
     Route: 048

REACTIONS (6)
  - Hypokalaemia [Recovered/Resolved]
  - Syncope [Recovered/Resolved]
  - Dehydration [Recovered/Resolved]
  - Gastrointestinal disorder [Recovered/Resolved]
  - Diarrhoea [Recovered/Resolved]
  - Acute kidney injury [Recovered/Resolved]
